FAERS Safety Report 4780532-7 (Version None)
Quarter: 2005Q3

REPORT INFORMATION
  Report Type: 
  Country: None (occurrence: None)
  Receive Date: 20050926
  Receipt Date: 20050913
  Transmission Date: 20060218
  Serious: Yes (Other)
  Sender: FDA-Public Use
  Company Number: 2005127325

PATIENT
  Age: 11 Year
  Sex: Male
  Weight: 46.2669 kg

DRUGS (2)
  1. ZMAX [Suspect]
     Indication: UPPER RESPIRATORY TRACT INFECTION
     Dates: start: 20050830
  2. ADDERALL XR 5 [Suspect]
     Indication: ATTENTION DEFICIT/HYPERACTIVITY DISORDER
     Dosage: (10 MG)
     Dates: start: 20050501, end: 20050909

REACTIONS (7)
  - CHILLS [None]
  - DRUG INTERACTION [None]
  - GASTRITIS EROSIVE [None]
  - MALAISE [None]
  - SPEECH DISORDER [None]
  - TONGUE PARALYSIS [None]
  - UPPER RESPIRATORY TRACT INFECTION [None]
